FAERS Safety Report 14906970 (Version 1)
Quarter: 2018Q2

REPORT INFORMATION
  Report Type: Report from Study
  Country: FR (occurrence: FR)
  Receive Date: 20180517
  Receipt Date: 20180517
  Transmission Date: 20180711
  Serious: Yes (Hospitalization)
  Sender: FDA-Public Use
  Company Number: FR-VELOXIS PHARMACEUTICALS-2047968

PATIENT
  Age: 76 Year
  Sex: Male
  Weight: 76 kg

DRUGS (27)
  1. PROGRAF [Concomitant]
     Active Substance: TACROLIMUS\TACROLIMUS ANHYDROUS
     Dates: start: 20170521, end: 20170529
  2. EUPRESSYL /00631801/ [Concomitant]
     Active Substance: URAPIDIL
     Dates: start: 20170724
  3. NOVORAPID [Concomitant]
     Active Substance: INSULIN ASPART
     Dates: start: 2012
  4. AMOXICILINA /00249601/ [Concomitant]
     Active Substance: AMOXICILLIN
     Dates: start: 20180406, end: 20180408
  5. PROGRAF [Concomitant]
     Active Substance: TACROLIMUS\TACROLIMUS ANHYDROUS
     Dates: start: 20170607, end: 20170612
  6. PROGRAF [Concomitant]
     Active Substance: TACROLIMUS\TACROLIMUS ANHYDROUS
     Dates: start: 20170620, end: 20171016
  7. PROGRAF [Concomitant]
     Active Substance: TACROLIMUS\TACROLIMUS ANHYDROUS
     Dates: start: 20171017, end: 20180112
  8. LEVOTHYROX [Concomitant]
     Active Substance: LEVOTHYROXINE
  9. PROGRAF [Concomitant]
     Active Substance: TACROLIMUS\TACROLIMUS ANHYDROUS
     Dates: start: 20170530, end: 20170606
  10. INEXIUM /01479302/ [Concomitant]
     Active Substance: ESOMEPRAZOLE MAGNESIUM
     Dates: start: 20170515
  11. TEMERIT [Concomitant]
     Active Substance: NEBIVOLOL
     Dates: start: 20180411
  12. PLAVIX [Concomitant]
     Active Substance: CLOPIDOGREL BISULFATE
     Dates: start: 20180404
  13. PROGRAF [Concomitant]
     Active Substance: TACROLIMUS\TACROLIMUS ANHYDROUS
     Dates: start: 20170515, end: 20170515
  14. PROGRAF [Concomitant]
     Active Substance: TACROLIMUS\TACROLIMUS ANHYDROUS
     Dates: start: 20170516, end: 20170516
  15. PROGRAF [Concomitant]
     Active Substance: TACROLIMUS\TACROLIMUS ANHYDROUS
     Dates: start: 20170517, end: 20170519
  16. CELLCEPT [Concomitant]
     Active Substance: MYCOPHENOLATE MOFETIL\MYCOPHENOLATE MOFETIL HYDROCHLORIDE
     Dates: start: 20170514
  17. KARDEGIC [Concomitant]
     Active Substance: ASPIRIN DL-LYSINE
     Dates: start: 20171023, end: 20180403
  18. MESTINON [Concomitant]
     Active Substance: PYRIDOSTIGMINE BROMIDE
     Dates: start: 2012
  19. TEMERIT [Concomitant]
     Active Substance: NEBIVOLOL
     Dates: start: 20170515, end: 20180410
  20. TEMESTA /00273201/ [Concomitant]
     Active Substance: LORAZEPAM
     Dates: start: 20170517
  21. ENVARSUS XR [Suspect]
     Active Substance: TACROLIMUS
     Indication: PROPHYLAXIS AGAINST TRANSPLANT REJECTION
     Route: 048
     Dates: start: 20180113
  22. PROGRAF [Concomitant]
     Active Substance: TACROLIMUS\TACROLIMUS ANHYDROUS
     Dates: start: 20170514, end: 20170514
  23. PROGRAF [Concomitant]
     Active Substance: TACROLIMUS\TACROLIMUS ANHYDROUS
     Dates: start: 20170520, end: 20170520
  24. PROGRAF [Concomitant]
     Active Substance: TACROLIMUS\TACROLIMUS ANHYDROUS
     Dates: start: 20170613, end: 20170619
  25. LANTUS [Concomitant]
     Active Substance: INSULIN GLARGINE
     Dates: start: 2012
  26. LERCAN [Concomitant]
     Active Substance: LERCANIDIPINE
     Dates: start: 20170516
  27. MAG2 [Concomitant]
     Dates: start: 20170522

REACTIONS (3)
  - Oedema peripheral [Recovered/Resolved]
  - Enterovirus infection [Recovered/Resolved]
  - Bronchitis [Recovered/Resolved]

NARRATIVE: CASE EVENT DATE: 20180201
